FAERS Safety Report 10720215 (Version 1)
Quarter: 2015Q1

REPORT INFORMATION
  Report Type: Spontaneous
  Country: US (occurrence: US)
  Receive Date: 20150119
  Receipt Date: 20150119
  Transmission Date: 20150721
  Serious: No
  Sender: FDA-Public Use
  Company Number: US-UNITED THERAPEUTICS-UNT-2014-007225

PATIENT
  Sex: Female
  Weight: 58.96 kg

DRUGS (3)
  1. REMODULIN [Suspect]
     Active Substance: TREPROSTINIL
     Indication: PULMONARY HYPERTENSION
     Dosage: 0.013 ?G/KG/MIN, CONTINUING
     Route: 058
     Dates: start: 20140805
  2. REVATIO [Concomitant]
     Active Substance: SILDENAFIL CITRATE
     Indication: PRODUCT USED FOR UNKNOWN INDICATION
  3. COUMADIN [Concomitant]
     Active Substance: WARFARIN SODIUM
     Indication: PRODUCT USED FOR UNKNOWN INDICATION

REACTIONS (16)
  - Pain [Unknown]
  - Infusion site infection [Unknown]
  - Infusion site erythema [Unknown]
  - Chills [Unknown]
  - Pollakiuria [Unknown]
  - Urinary tract infection [Unknown]
  - Infusion site reaction [Unknown]
  - Infusion site haemorrhage [Unknown]
  - Infusion site rash [Unknown]
  - Rash pruritic [Unknown]
  - Infusion site pain [Unknown]
  - Infusion site oedema [Unknown]
  - Injection site discharge [Unknown]
  - Thrombosis in device [Unknown]
  - Rash erythematous [Unknown]
  - Body temperature increased [Unknown]

NARRATIVE: CASE EVENT DATE: 2014
